FAERS Safety Report 15865346 (Version 1)
Quarter: 2019Q1

REPORT INFORMATION
  Report Type: Spontaneous
  Country: FR (occurrence: FR)
  Receive Date: 20190124
  Receipt Date: 20190124
  Transmission Date: 20190417
  Serious: Yes (Hospitalization)
  Sender: FDA-Public Use
  Company Number: FR-009507513-1901FRA006334

PATIENT
  Age: 61 Year
  Sex: Female
  Weight: 95 kg

DRUGS (12)
  1. LASILIX [Suspect]
     Active Substance: FUROSEMIDE
     Indication: CARDIAC FAILURE
     Dosage: 1.5 DOSAGE FORM, QD
     Route: 048
     Dates: end: 20180602
  2. ALLOPURINOL. [Concomitant]
     Active Substance: ALLOPURINOL
  3. UMULINE ZINC [Concomitant]
  4. VALSARTAN. [Suspect]
     Active Substance: VALSARTAN
     Indication: HYPERTENSION
     Dosage: 40 MILLIGRAM, QD
     Route: 048
     Dates: end: 20180602
  5. PANTOPRAZOLE [Concomitant]
     Active Substance: PANTOPRAZOLE
  6. SIMVASTATIN. [Suspect]
     Active Substance: SIMVASTATIN
  7. KARDEGIC [Concomitant]
     Active Substance: ASPIRIN DL-LYSINE
  8. METOPROLOL. [Concomitant]
     Active Substance: METOPROLOL
  9. COUMADINE [Concomitant]
     Active Substance: WARFARIN SODIUM
  10. HUMALOG [Concomitant]
     Active Substance: INSULIN LISPRO
  11. SYMBICORT [Concomitant]
     Active Substance: BUDESONIDE\FORMOTEROL FUMARATE DIHYDRATE
  12. IKOREL [Concomitant]
     Active Substance: NICORANDIL

REACTIONS (1)
  - Acute kidney injury [Recovered/Resolved]

NARRATIVE: CASE EVENT DATE: 20180602
